FAERS Safety Report 17924799 (Version 1)
Quarter: 2020Q2

REPORT INFORMATION
  Report Type: Spontaneous
  Country: US (occurrence: US)
  Receive Date: 20200622
  Receipt Date: 20200622
  Transmission Date: 20200714
  Serious: Yes (Other)
  Sender: FDA-Public Use
  Company Number: US-JNJFOC-20200619947

PATIENT
  Age: 85 Year
  Sex: Female
  Weight: 76.73 kg

DRUGS (5)
  1. ADCIRCA [Concomitant]
     Active Substance: TADALAFIL
  2. REMODULIN [Suspect]
     Active Substance: TREPROSTINIL
     Indication: PULMONARY ARTERIAL HYPERTENSION
     Dosage: CONCENTRATION 2.5 MG/ML
     Route: 058
     Dates: start: 20190905
  3. XARELTO [Suspect]
     Active Substance: RIVAROXABAN
     Indication: PRODUCT USED FOR UNKNOWN INDICATION
     Route: 048
  4. REMODULIN [Suspect]
     Active Substance: TREPROSTINIL
     Dosage: 0.008, G/KG, CONTINUOUS VIA SUBCUTANEOUS (SQ) ROUTE
     Route: 058
  5. OPSUMIT [Concomitant]
     Active Substance: MACITENTAN

REACTIONS (2)
  - Infusion site pain [Unknown]
  - Thrombosis in device [Unknown]

NARRATIVE: CASE EVENT DATE: 20200604
